FAERS Safety Report 4283148-4 (Version None)
Quarter: 2004Q1

REPORT INFORMATION
  Report Type: 
  Country: None (occurrence: None)
  Receive Date: 20040129
  Receipt Date: 20040120
  Transmission Date: 20041129
  Serious: Yes (Death)
  Sender: FDA-Public Use
  Company Number: 2004195180GB

PATIENT
  Age: 58 Year
  Sex: Male

DRUGS (2)
  1. CYCLOPHOSPHAMIDE (CYCLOPHOSPHAMIDE) [Suspect]
     Indication: ACQUIRED HAEMOPHILIA WITH ANTI FVIII, XI, OR XIII
     Dosage: CYCLIC, ORAL
     Route: 048
  2. DELTA-CORTEF (PREDNISOLONE) [Suspect]
     Indication: ACQUIRED HAEMOPHILIA WITH ANTI FVIII, XI, OR XIII
     Dosage: 1MG/KG
     Route: 048

REACTIONS (3)
  - HERPES ZOSTER [None]
  - NEUTROPENIC SEPSIS [None]
  - PNEUMONIA [None]
